FAERS Safety Report 7000989-0 (Version None)
Quarter: 2010Q3

REPORT INFORMATION
  Report Type: 
  Country: None (occurrence: None)
  Receive Date: 20100920
  Receipt Date: 20100623
  Transmission Date: 20110219
  Serious: No
  Sender: FDA-Public Use
  Company Number: US-ASTRAZENECA-2010SE29366

PATIENT
  Sex: Male

DRUGS (1)
  1. SEROQUEL [Suspect]
     Route: 048
     Dates: start: 20100401

REACTIONS (3)
  - AKATHISIA [None]
  - PHOTOPSIA [None]
  - VERTIGO [None]
